FAERS Safety Report 7041751-2 (Version None)
Quarter: 2010Q4

REPORT INFORMATION
  Report Type: 
  Country: None (occurrence: None)
  Receive Date: 20101013
  Receipt Date: 20091116
  Transmission Date: 20110411
  Serious: No
  Sender: FDA-Public Use
  Company Number: US-ASTRAZENECA-2009SE26703

PATIENT
  Age: 66 Year
  Sex: Male
  Weight: 104.3 kg

DRUGS (6)
  1. SYMBICORT [Suspect]
     Indication: CHRONIC OBSTRUCTIVE PULMONARY DISEASE
     Dosage: 160 UG BID
     Route: 055
     Dates: start: 20091001
  2. CAPADEX [Concomitant]
  3. FUROSEMIDE [Concomitant]
  4. KLOR-CON [Concomitant]
  5. PAXIL [Concomitant]
  6. SPIRIVA [Concomitant]

REACTIONS (4)
  - DYSPHONIA [None]
  - FUNGAL INFECTION [None]
  - NERVOUSNESS [None]
  - WHEEZING [None]
